FAERS Safety Report 12946462 (Version 3)
Quarter: 2016Q4

REPORT INFORMATION
  Report Type: Report from Study
  Country: US (occurrence: US)
  Receive Date: 20161116
  Receipt Date: 20161202
  Transmission Date: 20170207
  Serious: Yes (Hospitalization, Disabling, Other)
  Sender: FDA-Public Use
  Company Number: US-GILEAD-2016-0242496

PATIENT
  Age: 36 Year
  Sex: Female

DRUGS (9)
  1. AMBRISENTAN [Suspect]
     Active Substance: AMBRISENTAN
     Indication: VENTRICULAR DYSFUNCTION
  2. PRIMOX                             /00006502/ [Concomitant]
  3. DEPAKOTE [Concomitant]
     Active Substance: DIVALPROEX SODIUM
  4. AMBRISENTAN [Suspect]
     Active Substance: AMBRISENTAN
     Indication: PULMONARY ARTERIAL HYPERTENSION
     Dosage: 5 MG, UNK
     Route: 048
     Dates: start: 20160729, end: 20161026
  5. AMBRISENTAN [Suspect]
     Active Substance: AMBRISENTAN
     Indication: HYPOPLASTIC LEFT HEART SYNDROME
  6. ALDACTONE [Concomitant]
     Active Substance: SPIRONOLACTONE
  7. WELLBUTRIN [Concomitant]
     Active Substance: BUPROPION HYDROCHLORIDE
  8. DIGOXIN. [Concomitant]
     Active Substance: DIGOXIN
  9. POTASSIUM [Concomitant]
     Active Substance: POTASSIUM

REACTIONS (6)
  - Vision blurred [Not Recovered/Not Resolved]
  - Subdural haemorrhage [Unknown]
  - Chest pain [Recovered/Resolved]
  - Fatigue [Unknown]
  - Headache [Not Recovered/Not Resolved]
  - Aneurysm [Unknown]

NARRATIVE: CASE EVENT DATE: 20161020
